FAERS Safety Report 19761334 (Version 2)
Quarter: 2022Q1

REPORT INFORMATION
  Report Type: Report from Study
  Country: JP (occurrence: JP)
  Receive Date: 20210830
  Receipt Date: 20220131
  Transmission Date: 20220423
  Serious: Yes (Other)
  Sender: FDA-Public Use
  Company Number: JP-RECORDATI RARE DISEASE INC.-2021003429

PATIENT
  Sex: Male
  Weight: 1.245 kg

DRUGS (2)
  1. NEOPROFEN [Suspect]
     Active Substance: IBUPROFEN LYSINE
     Indication: Patent ductus arteriosus
     Dosage: 12 MILLIGRAM, QD
     Route: 042
     Dates: start: 20210122, end: 20210122
  2. VICCILLIN [AMPICILLIN SODIUM] [Concomitant]
     Indication: Sepsis
     Dosage: UNK, UNK
     Route: 042
     Dates: start: 20210121, end: 20210126

REACTIONS (1)
  - Meconium ileus [Recovering/Resolving]

NARRATIVE: CASE EVENT DATE: 20210124
